FAERS Safety Report 12156143 (Version 1)
Quarter: 2016Q1

REPORT INFORMATION
  Report Type: Report from Study
  Country: US (occurrence: US)
  Receive Date: 20160307
  Receipt Date: 20160307
  Transmission Date: 20160526
  Serious: Yes (Hospitalization)
  Sender: FDA-Public Use
  Company Number: US-BIOGEN-2011BI004497

PATIENT
  Age: 56 Year
  Sex: Female

DRUGS (15)
  1. IRON [Concomitant]
     Active Substance: IRON
     Indication: PRODUCT USED FOR UNKNOWN INDICATION
     Route: 048
  2. ASCORBIC ACID. [Concomitant]
     Active Substance: ASCORBIC ACID
     Indication: PRODUCT USED FOR UNKNOWN INDICATION
     Route: 048
  3. RELAFEN [Concomitant]
     Active Substance: NABUMETONE
     Indication: PRODUCT USED FOR UNKNOWN INDICATION
     Route: 048
  4. LYRICA [Concomitant]
     Active Substance: PREGABALIN
     Indication: PRODUCT USED FOR UNKNOWN INDICATION
     Route: 048
  5. CYMBALTA [Concomitant]
     Active Substance: DULOXETINE HYDROCHLORIDE
     Indication: PRODUCT USED FOR UNKNOWN INDICATION
     Route: 048
  6. LIORESAL [Concomitant]
     Active Substance: BACLOFEN
     Indication: PRODUCT USED FOR UNKNOWN INDICATION
     Route: 048
  7. METANX (L-METHYLFOLATE-B6-B12) [Concomitant]
     Indication: PRODUCT USED FOR UNKNOWN INDICATION
     Route: 065
  8. VITAMIN B12 [Concomitant]
     Active Substance: CYANOCOBALAMIN
     Indication: PRODUCT USED FOR UNKNOWN INDICATION
     Route: 065
  9. PRILOSEC [Concomitant]
     Active Substance: OMEPRAZOLE MAGNESIUM
     Indication: PRODUCT USED FOR UNKNOWN INDICATION
     Route: 065
  10. CARBITOL [Concomitant]
     Indication: PRODUCT USED FOR UNKNOWN INDICATION
     Route: 048
  11. TYSABRI [Suspect]
     Active Substance: NATALIZUMAB
     Indication: MULTIPLE SCLEROSIS
     Dosage: INFUSED OVER 1 HOUR
     Route: 042
     Dates: start: 20100824
  12. BUTENAFINE [Concomitant]
     Indication: DRUG THERAPY
     Route: 065
  13. TYSABRI [Suspect]
     Active Substance: NATALIZUMAB
     Route: 065
  14. AVENTYL [Concomitant]
     Indication: PRODUCT USED FOR UNKNOWN INDICATION
     Route: 048
  15. DRISDOL [Concomitant]
     Active Substance: ERGOCALCIFEROL
     Indication: PRODUCT USED FOR UNKNOWN INDICATION
     Route: 048

REACTIONS (16)
  - Muscular weakness [Recovered/Resolved]
  - Musculoskeletal pain [Recovered/Resolved]
  - Overdose [Recovered/Resolved]
  - Upper limb fracture [Recovered/Resolved]
  - Osteoporosis [Not Recovered/Not Resolved]
  - Fall [Recovered/Resolved]
  - Hip fracture [Recovered/Resolved]
  - Procedural pneumothorax [Recovered/Resolved]
  - Lung neoplasm malignant [Recovered/Resolved]
  - Chronic obstructive pulmonary disease [Not Recovered/Not Resolved]
  - Back pain [Recovered/Resolved]
  - Memory impairment [Not Recovered/Not Resolved]
  - Bone pain [Not Recovered/Not Resolved]
  - Visual impairment [Unknown]
  - Amnesia [Unknown]
  - Nasopharyngitis [Recovered/Resolved]

NARRATIVE: CASE EVENT DATE: 20101201
